FAERS Safety Report 7885241-3 (Version None)
Quarter: 2011Q4

REPORT INFORMATION
  Report Type: 
  Country: None (occurrence: None)
  Receive Date: 20111102
  Receipt Date: 20111101
  Transmission Date: 20120403
  Serious: Yes (Death)
  Sender: FDA-Public Use
  Company Number: JP-BAYER-2011-105878

PATIENT
  Age: 79 Year
  Sex: Female

DRUGS (6)
  1. NIFEDIPINE [Suspect]
     Indication: HYPERTENSION
     Dosage: 20 MG, BID
     Route: 048
     Dates: start: 20100917, end: 20100925
  2. AMLODIPINE [Concomitant]
     Indication: HYPERTENSION
     Dosage: 5 MG, BID
     Route: 048
     Dates: start: 20090415, end: 20100730
  3. BISOPROLOL FUMARATE [Concomitant]
     Indication: HYPERTENSION
     Dosage: 5 MG, QD
     Route: 048
     Dates: start: 20090227, end: 20100917
  4. CRESTOR [Concomitant]
     Dosage: DAILY DOSE 2.5 MG
     Route: 048
     Dates: start: 20080912, end: 20100917
  5. TICLOPIDINE HCL [Concomitant]
     Dosage: DAILY DOSE 200 MG
     Route: 048
     Dates: start: 20080118, end: 20100917
  6. SIGMART [Concomitant]
     Dosage: DAILY DOSE 10 MG
     Route: 048
     Dates: start: 20080118, end: 20100917

REACTIONS (1)
  - CEREBRAL HAEMORRHAGE [None]
